FAERS Safety Report 14792669 (Version 28)
Quarter: 2021Q4

REPORT INFORMATION
  Report Type: Spontaneous
  Country: US (occurrence: US)
  Receive Date: 20180423
  Receipt Date: 20211129
  Transmission Date: 20220303
  Serious: Yes (Other)
  Sender: FDA-Public Use
  Company Number: US-PFIZER INC-2018163654

PATIENT
  Age: 62 Year
  Sex: Male
  Weight: 84 kg

DRUGS (7)
  1. LYRICA [Suspect]
     Active Substance: PREGABALIN
     Indication: Cancer pain
     Dosage: 75 MG, 3X/DAY
     Route: 048
  2. LYRICA [Suspect]
     Active Substance: PREGABALIN
     Indication: Musculoskeletal stiffness
     Dosage: 100 MG, 3X/DAY
     Route: 048
  3. LYRICA [Suspect]
     Active Substance: PREGABALIN
     Indication: Pain
     Dosage: 125 MG, 3X/DAY(TAKE 1 CAPSULE THREE TIMES A DAY)
  4. LYRICA [Suspect]
     Active Substance: PREGABALIN
     Indication: Burning sensation
     Dosage: 150 MG, 3X/DAY
     Route: 048
  5. LYRICA [Suspect]
     Active Substance: PREGABALIN
     Indication: Neck pain
     Dosage: 100 MG, [100MG ONCE OR TWICE A DAY]
  6. LYRICA [Suspect]
     Active Substance: PREGABALIN
     Indication: Fatigue
     Dosage: UNK, 3X/DAY
  7. LYRICA [Suspect]
     Active Substance: PREGABALIN
     Dosage: 300 MG, 3X/DAY
     Route: 048

REACTIONS (10)
  - Neoplasm malignant [Not Recovered/Not Resolved]
  - Disease recurrence [Not Recovered/Not Resolved]
  - Nasopharyngitis [Unknown]
  - Malaise [Unknown]
  - Headache [Unknown]
  - Sluggishness [Unknown]
  - Feeling abnormal [Unknown]
  - Pain [Unknown]
  - Abdominal discomfort [Unknown]
  - Prescribed overdose [Unknown]
